FAERS Safety Report 7638793-2 (Version None)
Quarter: 2011Q3

REPORT INFORMATION
  Report Type: 
  Country: None (occurrence: None)
  Receive Date: 20110727
  Receipt Date: 20110718
  Transmission Date: 20111222
  Serious: Yes (Other)
  Sender: FDA-Public Use
  Company Number: ES-ROCHE-791590

PATIENT
  Age: 64 Year
  Sex: Female

DRUGS (1)
  1. BEVACIZUMAB [Suspect]
     Dosage: 1.25 MG/0.05 ML
     Route: 031

REACTIONS (1)
  - ANGLE CLOSURE GLAUCOMA [None]
